FAERS Safety Report 7038527-9 (Version None)
Quarter: 2010Q4

REPORT INFORMATION
  Report Type: 
  Country: None (occurrence: None)
  Receive Date: 20101011
  Receipt Date: 20100518
  Transmission Date: 20110411
  Serious: No
  Sender: FDA-Public Use
  Company Number: US-PFIZER INC-2010063187

PATIENT
  Sex: Male
  Weight: 66.213 kg

DRUGS (7)
  1. GABAPENTIN [Suspect]
     Indication: SPINAL OSTEOARTHRITIS
     Dosage: 600 MG, 3X/DAY
     Route: 048
     Dates: start: 20060101, end: 20060101
  2. GABAPENTIN [Suspect]
     Indication: SPINAL COLUMN STENOSIS
  3. CLONAZEPAM [Concomitant]
  4. DOXAZOSIN [Concomitant]
  5. FENTANYL [Concomitant]
  6. FINASTERIDE [Concomitant]
  7. LISINOPRIL [Concomitant]

REACTIONS (2)
  - DRUG INEFFECTIVE [None]
  - PRURITUS [None]
